FAERS Safety Report 4503126-7 (Version None)
Quarter: 2004Q4

REPORT INFORMATION
  Report Type: 
  Country: None (occurrence: None)
  Receive Date: 20041117
  Receipt Date: 20041108
  Transmission Date: 20050328
  Serious: Yes (Hospitalization, Other)
  Sender: FDA-Public Use
  Company Number: FR-BRISTOL-MYERS SQUIBB COMPANY-12759585

PATIENT
  Age: 46 Year
  Sex: Male

DRUGS (1)
  1. PRAVASTATIN [Suspect]
     Indication: HYPERCHOLESTEROLAEMIA
     Dosage: INITIAL DOSE 20 MG DAILY FOR 3 YEARS, THEN INCREASED TO 40 MG DAILY IN SEP2004
     Route: 048
     Dates: start: 20010101, end: 20041001

REACTIONS (3)
  - DEMYELINATION [None]
  - DIZZINESS [None]
  - VISION BLURRED [None]
